FAERS Safety Report 5910820-X (Version None)
Quarter: 2008Q4

REPORT INFORMATION
  Report Type: 
  Country: None (occurrence: None)
  Receive Date: 20081006
  Receipt Date: 20081006
  Transmission Date: 20090506
  Serious: Yes (Hospitalization)
  Sender: FDA-Public Use
  Company Number: None

PATIENT
  Sex: Male
  Weight: 69.6 kg

DRUGS (1)
  1. BYETTA [Suspect]
     Indication: TYPE 2 DIABETES MELLITUS
     Dosage: 10 MG DAILY SQ
     Route: 058

REACTIONS (7)
  - ANOREXIA [None]
  - CHOLECYSTECTOMY [None]
  - CHOLELITHIASIS [None]
  - COMPUTERISED TOMOGRAM NORMAL [None]
  - PANCREATIC NECROSIS [None]
  - PANCREATITIS [None]
  - SWELLING [None]
